FAERS Safety Report 9726553 (Version 2)
Quarter: 2014Q1

REPORT INFORMATION
  Report Type: Spontaneous
  Country: US (occurrence: US)
  Receive Date: 20131203
  Receipt Date: 20140113
  Transmission Date: 20141002
  Serious: Yes (Hospitalization)
  Sender: FDA-Public Use
  Company Number: US-GLAXOSMITHKLINE-A1051292A

PATIENT
  Age: 65 Year
  Sex: Male

DRUGS (5)
  1. VENTOLIN [Suspect]
     Indication: ASTHMA
     Dosage: 2PUFF AS REQUIRED
     Route: 055
     Dates: start: 2010
  2. SYMBICORT [Concomitant]
  3. BENICAR [Concomitant]
  4. LOVASTATIN [Concomitant]
  5. ATARAX [Concomitant]

REACTIONS (2)
  - Bronchospasm paradoxical [Recovered/Resolved]
  - Bronchospasm [Unknown]
